FAERS Safety Report 9231607 (Version 1)
Quarter: 2013Q2

REPORT INFORMATION
  Report Type: Report from Study
  Country: US (occurrence: US)
  Receive Date: 20130415
  Receipt Date: 20130415
  Transmission Date: 20140414
  Serious: Yes (Other)
  Sender: FDA-Public Use
  Company Number: US-MYLANLABS-2013S1007163

PATIENT
  Age: 21 Year
  Sex: Female
  Weight: 58.97 kg

DRUGS (4)
  1. ISOTRETINOIN [Suspect]
     Indication: ACNE
     Route: 048
     Dates: start: 20130110, end: 20130122
  2. TOPAMAX [Concomitant]
     Indication: MIGRAINE
     Route: 048
  3. XYZAL [Concomitant]
     Indication: MULTIPLE ALLERGIES
     Route: 048
  4. IMITREX [Concomitant]
     Indication: MIGRAINE

REACTIONS (2)
  - Suicidal ideation [Not Recovered/Not Resolved]
  - Depression [Not Recovered/Not Resolved]
